FAERS Safety Report 16372831 (Version 2)
Quarter: 2019Q2

REPORT INFORMATION
  Report Type: Report from Study
  Country: US (occurrence: US)
  Receive Date: 20190530
  Receipt Date: 20190628
  Transmission Date: 20190711
  Serious: Yes (Hospitalization)
  Sender: FDA-Public Use
  Company Number: US-BAYER-2019-104020

PATIENT
  Age: 69 Year
  Sex: Male

DRUGS (7)
  1. STIVARGA [Suspect]
     Active Substance: REGORAFENIB
     Indication: COLON CANCER
     Dosage: DAILY DOSE 80 MG (FOR 21 DAYS THEN 7 DAYS OFF))
     Route: 048
     Dates: start: 20190517, end: 20190620
  2. IMODIUM [Concomitant]
     Active Substance: LOPERAMIDE HYDROCHLORIDE
  3. STIVARGA [Suspect]
     Active Substance: REGORAFENIB
     Indication: COLON CANCER
     Dosage: 80 MG, QD
     Route: 048
     Dates: end: 20190502
  4. PROCHLORPERAZ [Concomitant]
     Active Substance: PROCHLORPERAZINE MALEATE
  5. ROSUVASTATIN. [Concomitant]
     Active Substance: ROSUVASTATIN
  6. LORAZEPAM. [Concomitant]
     Active Substance: LORAZEPAM
  7. DIPHEN [AMMONIUM CHLORIDE;DIPHENHYDRAMINE HYDROCHLORIDE;SODIUM CIT [Concomitant]

REACTIONS (4)
  - Sepsis [Recovered/Resolved]
  - Pneumonia [Recovered/Resolved]
  - Incorrect product administration duration [None]
  - Off label use [None]

NARRATIVE: CASE EVENT DATE: 2019
